FAERS Safety Report 8797090 (Version 2)
Quarter: 2012Q4

REPORT INFORMATION
  Report Type: 
  Country: US (occurrence: US)
  Receive Date: 20120920
  Receipt Date: 20120930
  Transmission Date: 20130627
  Serious: Yes (Disabling)
  Sender: FDA-Public Use
  Company Number: US-009507513-1209USA005004

PATIENT
  Sex: Female

DRUGS (8)
  1. PRINIVIL [Suspect]
     Indication: HYPERTENSION
     Dosage: 10 mg, qd
     Route: 048
     Dates: start: 200806
  2. PRINIVIL [Suspect]
     Dosage: 5 mg, UNK
     Route: 048
  3. PRINIVIL [Suspect]
     Dosage: UNK
     Dates: start: 200904
  4. METFORMIN HYDROCHLORIDE [Concomitant]
  5. SINGULAIR [Concomitant]
  6. GABAPENTIN [Concomitant]
  7. NAPROXEN [Concomitant]
  8. XOPENEX HFA [Concomitant]

REACTIONS (7)
  - Oral pain [Not Recovered/Not Resolved]
  - Blood pressure decreased [Not Recovered/Not Resolved]
  - Tooth fracture [Not Recovered/Not Resolved]
  - Tooth extraction [Not Recovered/Not Resolved]
  - Tooth infection [Not Recovered/Not Resolved]
  - Enamel anomaly [Not Recovered/Not Resolved]
  - Eating disorder [Not Recovered/Not Resolved]
